FAERS Safety Report 4322097-X (Version None)
Quarter: 2004Q1

REPORT INFORMATION
  Report Type: 
  Country: None (occurrence: None)
  Receive Date: 20040323
  Receipt Date: 20040310
  Transmission Date: 20041129
  Serious: Yes (Life-Threatening, Hospitalization, Other)
  Sender: FDA-Public Use
  Company Number: LB-GLAXOSMITHKLINE-B0326169A

PATIENT
  Age: 58 Year
  Sex: Male

DRUGS (3)
  1. ROSIGLITAZONE MALEATE [Suspect]
     Indication: DIABETES MELLITUS
     Dates: start: 20040226, end: 20040305
  2. GLIBOMET [Concomitant]
  3. PLAVIX [Concomitant]

REACTIONS (3)
  - ASCITES [None]
  - HYDROCELE [None]
  - OEDEMA [None]
